FAERS Safety Report 8833891 (Version 1)
Quarter: 2012Q4

REPORT INFORMATION
  Report Type: 
  Country: US (occurrence: US)
  Receive Date: 20121010
  Receipt Date: 20121010
  Transmission Date: 20130627
  Serious: Yes (Other)
  Sender: FDA-Public Use
  Company Number: CHPA2012US020707

PATIENT
  Age: 50 Year
  Sex: Female

DRUGS (4)
  1. MAALOX ANTACID/ANTIGAS MAX LIQ UNKNOWN [Suspect]
     Indication: GASTROOESOPHAGEAL REFLUX DISEASE
     Dosage: AS DIRECTED, PRN
     Route: 048
  2. MAALOX UNKNOWN [Suspect]
     Indication: FLATULENCE
     Dosage: 1 DF, PRN
     Route: 048
  3. PROBIOTICS [Concomitant]
     Indication: GASTROOESOPHAGEAL REFLUX DISEASE
     Dosage: Unk, ON AND OFF
     Route: 048
  4. PROBIOTICS [Concomitant]
     Indication: DYSPEPSIA

REACTIONS (2)
  - Hepatic mass [Not Recovered/Not Resolved]
  - Off label use [None]
